FAERS Safety Report 10809806 (Version 1)
Quarter: 2015Q1

REPORT INFORMATION
  Report Type: Report from Study
  Country: US (occurrence: US)
  Receive Date: 20150217
  Receipt Date: 20150217
  Transmission Date: 20150721
  Serious: No
  Sender: FDA-Public Use
  Company Number: US-ABBVIE-14K-163-1228674-00

PATIENT
  Age: 35 Year
  Sex: Female

DRUGS (3)
  1. ACYCLOVIR. [Concomitant]
     Active Substance: ACYCLOVIR
     Indication: HERPES VIRUS INFECTION
  2. HUMIRA [Suspect]
     Active Substance: ADALIMUMAB
     Indication: COLITIS ULCERATIVE
     Dosage: LOADING DOSE
     Dates: start: 20140415, end: 20140415
  3. HUMIRA [Suspect]
     Active Substance: ADALIMUMAB

REACTIONS (6)
  - Injection site pain [Recovered/Resolved]
  - Limb discomfort [Recovered/Resolved]
  - Injection site pruritus [Recovered/Resolved]
  - Headache [Recovered/Resolved]
  - Pain in extremity [Recovering/Resolving]
  - Muscle spasms [Recovering/Resolving]

NARRATIVE: CASE EVENT DATE: 201404
